FAERS Safety Report 8837262 (Version 1)
Quarter: 2012Q4

REPORT INFORMATION
  Report Type: Spontaneous
  Country: US (occurrence: None)
  Receive Date: 20121011
  Receipt Date: 20121011
  Transmission Date: 20130627
  Serious: Yes (Other)
  Sender: FDA-Public Use
  Company Number: None

PATIENT
  Age: 57 Year
  Sex: Female

DRUGS (2)
  1. CELEXA [Suspect]
     Dosage: Celexa 20 daily  PO - liquid
     Route: 048
     Dates: start: 20110910, end: 20111012
  2. LEXAPRO [Suspect]
     Dosage: Lexapro 20 daily PO - Liquid
     Route: 048
     Dates: start: 20111006, end: 20111012

REACTIONS (7)
  - Abdominal discomfort [None]
  - Vomiting [None]
  - Diarrhoea [None]
  - Abdominal distension [None]
  - Headache [None]
  - Hypersensitivity [None]
  - Product substitution issue [None]
